FAERS Safety Report 6686069-2 (Version None)
Quarter: 2010Q2

REPORT INFORMATION
  Report Type: 
  Country: None (occurrence: None)
  Receive Date: 20100414
  Receipt Date: 20100407
  Transmission Date: 20101027
  Serious: Yes (Death)
  Sender: FDA-Public Use
  Company Number: 009220

PATIENT
  Age: 40 Year
  Sex: Male

DRUGS (4)
  1. BUSULFEX [Suspect]
     Indication: STEM CELL TRANSPLANT
     Dosage: 16 MG/KG ORAL
     Route: 048
  2. CYCLOPHOSPHAMIDE [Concomitant]
  3. CYCLOSPORINE [Concomitant]
  4. METHOTREXATE [Concomitant]

REACTIONS (6)
  - ACUTE GRAFT VERSUS HOST DISEASE IN LIVER [None]
  - ADENOCARCINOMA [None]
  - HYPERCALCAEMIA [None]
  - LUNG INFECTION [None]
  - LUNG NEOPLASM MALIGNANT [None]
  - PLEURAL EFFUSION [None]
